FAERS Safety Report 7305466-5 (Version None)
Quarter: 2011Q1

REPORT INFORMATION
  Report Type: 
  Country: None (occurrence: None)
  Receive Date: 20110222
  Receipt Date: 20110210
  Transmission Date: 20110831
  Serious: Yes (Hospitalization)
  Sender: FDA-Public Use
  Company Number: US-ELI_LILLY_AND_COMPANY-US201002002259

PATIENT
  Sex: Female

DRUGS (14)
  1. EVISTA [Suspect]
     Indication: OSTEOPOROSIS
     Dosage: 60 MG, DAILY (1/D)
  2. TOPAMAX [Concomitant]
  3. FORTEO [Suspect]
     Indication: OSTEOPOROSIS
     Dosage: 20 UG, DAILY (1/D)
     Dates: start: 20090901
  4. ZOLOFT [Concomitant]
     Dosage: 1 D/F, EACH EVENING
  5. ALLEGRA [Concomitant]
  6. LEVOTHYROXINE [Concomitant]
     Indication: THYROID DISORDER
  7. TEGRETOL [Concomitant]
  8. LASIX [Concomitant]
  9. POTASSIUM [Concomitant]
  10. FORTEO [Suspect]
     Dosage: 20 UG, DAILY (1/D)
  11. SEROQUEL [Concomitant]
  12. TRAMADOL HCL [Concomitant]
  13. ZANAFLEX [Concomitant]
  14. PLAVIX [Concomitant]

REACTIONS (19)
  - ARTHRALGIA [None]
  - COORDINATION ABNORMAL [None]
  - MALAISE [None]
  - AMNESIA [None]
  - FIBROMYALGIA [None]
  - ROAD TRAFFIC ACCIDENT [None]
  - DYSARTHRIA [None]
  - ANKLE FRACTURE [None]
  - HIP FRACTURE [None]
  - JAW FRACTURE [None]
  - CEREBRAL HAEMORRHAGE [None]
  - ARTHRITIS [None]
  - INJECTION SITE HAEMATOMA [None]
  - LOWER LIMB FRACTURE [None]
  - TRANSIENT ISCHAEMIC ATTACK [None]
  - DIZZINESS [None]
  - PAIN IN JAW [None]
  - RIB FRACTURE [None]
  - BURSITIS [None]
